FAERS Safety Report 23700628 (Version 1)
Quarter: 2024Q2

REPORT INFORMATION
  Report Type: Other
  Country: PK (occurrence: None)
  Receive Date: 20240403
  Receipt Date: 20240403
  Transmission Date: 20240715
  Serious: Yes (Death)
  Sender: FDA-Public Use
  Company Number: PK-ROCHE-3534811

PATIENT
  Age: 50 Year
  Sex: Male

DRUGS (1)
  1. RITUXIMAB [Suspect]
     Active Substance: RITUXIMAB
     Indication: Diffuse large B-cell lymphoma
     Dosage: 3 WEEKS
     Route: 042

REACTIONS (2)
  - Neoplasm malignant [Fatal]
  - Respiratory disorder [Fatal]
